FAERS Safety Report 14034799 (Version 1)
Quarter: 2017Q4

REPORT INFORMATION
  Report Type: Spontaneous
  Country: US (occurrence: US)
  Receive Date: 20171003
  Receipt Date: 20171003
  Transmission Date: 20180321
  Serious: No
  Sender: FDA-Public Use
  Company Number: US-GLAXOSMITHKLINE-US2017GSK151017

PATIENT
  Sex: Male

DRUGS (3)
  1. NYSTATIN. [Concomitant]
     Active Substance: NYSTATIN
  2. LAMOTRIGINE TABLET [Suspect]
     Active Substance: LAMOTRIGINE
     Dosage: 50 MG, UNK
  3. LAMOTRIGINE TABLET [Suspect]
     Active Substance: LAMOTRIGINE
     Indication: PRODUCT USED FOR UNKNOWN INDICATION
     Dosage: 25 MG, UNK

REACTIONS (13)
  - Viral infection [Unknown]
  - Pruritus [Unknown]
  - Tongue blistering [Unknown]
  - Oral pain [Unknown]
  - Oropharyngeal pain [Unknown]
  - Sensation of foreign body [Unknown]
  - Scratch [Unknown]
  - Acne [Unknown]
  - Acne pustular [Unknown]
  - Oral candidiasis [Unknown]
  - Streptococcus test negative [Unknown]
  - Skin disorder [Unknown]
  - Skin fissures [Unknown]

NARRATIVE: CASE EVENT DATE: 20170927
